FAERS Safety Report 14540173 (Version 3)
Quarter: 2018Q2

REPORT INFORMATION
  Report Type: Report from Study
  Country: SE (occurrence: SE)
  Receive Date: 20180216
  Receipt Date: 20180413
  Transmission Date: 20180711
  Serious: Yes (Hospitalization, Disabling, Other)
  Sender: FDA-Public Use
  Company Number: SE-ASTELLAS-2018US008566

PATIENT
  Age: 60 Year
  Sex: Male

DRUGS (7)
  1. SANDIMMUN [Suspect]
     Active Substance: CYCLOSPORINE
     Route: 048
  2. MYCOPHENOLATE MOFETIL. [Suspect]
     Active Substance: MYCOPHENOLATE MOFETIL
     Dosage: UNK, UNKNOWN FREQ. (REDUCED DOSE)
     Route: 048
  3. SANDIMMUN [Suspect]
     Active Substance: CYCLOSPORINE
     Indication: PRODUCT USED FOR UNKNOWN INDICATION
     Route: 048
  4. TACROLIMUS. [Suspect]
     Active Substance: TACROLIMUS
     Indication: PRODUCT USED FOR UNKNOWN INDICATION
     Dosage: UNK, UNKNOWN FREQ.
     Route: 065
     Dates: start: 20161201
  5. MYCOPHENOLATE MOFETIL. [Suspect]
     Active Substance: MYCOPHENOLATE MOFETIL
     Indication: PRODUCT USED FOR UNKNOWN INDICATION
     Route: 048
  6. PREDNISOLON                        /00016201/ [Suspect]
     Active Substance: PREDNISOLONE
     Dosage: UNK, UNKNOWN FREQ. (REDUCED DOSE)
     Route: 048
  7. PREDNISOLON                        /00016201/ [Suspect]
     Active Substance: PREDNISOLONE
     Indication: PRODUCT USED FOR UNKNOWN INDICATION
     Route: 048

REACTIONS (3)
  - Abdominal neoplasm [Not Recovered/Not Resolved]
  - Metastases to liver [Not Recovered/Not Resolved]
  - Pulmonary embolism [Recovered/Resolved with Sequelae]

NARRATIVE: CASE EVENT DATE: 20170303
